FAERS Safety Report 24699244 (Version 2)
Quarter: 2024Q4

REPORT INFORMATION
  Report Type: Spontaneous
  Country: JP (occurrence: JP)
  Receive Date: 20241205
  Receipt Date: 20241216
  Transmission Date: 20250114
  Serious: Yes (Other)
  Sender: TAKEDA
  Company Number: JP-TAKEDA-2024TJP017250

PATIENT
  Age: 78 Year
  Sex: Female

DRUGS (13)
  1. ALUNBRIG [Suspect]
     Active Substance: BRIGATINIB
     Indication: Lung neoplasm malignant
     Dosage: 90 MILLIGRAM
  2. ALUNBRIG [Suspect]
     Active Substance: BRIGATINIB
     Dosage: 180 MILLIGRAM, QD
  3. AGRYLIN [Concomitant]
     Active Substance: ANAGRELIDE HYDROCHLORIDE
     Dosage: UNK
  4. TORSEMIDE [Concomitant]
     Active Substance: TORSEMIDE
     Dosage: UNK
  5. ZINC ACETATE [Concomitant]
     Active Substance: ZINC ACETATE
     Dosage: UNK
  6. BISOPROLOL FUMARATE [Concomitant]
     Active Substance: BISOPROLOL FUMARATE
     Dosage: UNK
  7. LINZESS [Concomitant]
     Active Substance: LINACLOTIDE
     Dosage: UNK
  8. ASPIRIN [Concomitant]
     Active Substance: ASPIRIN
     Dosage: UNK
  9. RABEPRAZOLE SODIUM [Concomitant]
     Active Substance: RABEPRAZOLE SODIUM
     Dosage: UNK
  10. AMLODIPINE BESYLATE [Concomitant]
     Active Substance: AMLODIPINE BESYLATE
     Dosage: UNK
  11. METGLUCO [Concomitant]
     Active Substance: METFORMIN HYDROCHLORIDE
     Dosage: UNK
  12. MIGLITOL [Concomitant]
     Active Substance: MIGLITOL
     Dosage: UNK
  13. MAGNESIUM OXIDE [Concomitant]
     Active Substance: MAGNESIUM OXIDE
     Dosage: UNK

REACTIONS (1)
  - Diabetes mellitus [Not Recovered/Not Resolved]

NARRATIVE: CASE EVENT DATE: 20241203
